FAERS Safety Report 7162447-2 (Version None)
Quarter: 2010Q4

REPORT INFORMATION
  Report Type: 
  Country: None (occurrence: None)
  Receive Date: 20101215
  Receipt Date: 20091102
  Transmission Date: 20110411
  Serious: Yes (Hospitalization)
  Sender: FDA-Public Use
  Company Number: FR-PFIZER INC-2009291494

PATIENT
  Age: 85 Year
  Sex: Female

DRUGS (9)
  1. LYRICA [Suspect]
     Dosage: 75 MG, 2X/DAY
     Route: 048
     Dates: start: 20090918, end: 20090930
  2. RAMIPRIL [Suspect]
     Dosage: UNK
     Route: 048
     Dates: end: 20090930
  3. CYMBALTA [Suspect]
     Dosage: 60 MG, 1X/DAY
     Route: 048
     Dates: start: 20090918, end: 20091006
  4. CRESTOR [Concomitant]
     Dosage: 5 MG, 1X/DAY
     Route: 048
     Dates: end: 20091009
  5. PLAVIX [Concomitant]
     Dosage: UNK
  6. CARDENSIEL [Concomitant]
     Dosage: UNK
  7. LASIX [Concomitant]
     Dosage: UNK
  8. ALPRAZOLAM [Concomitant]
     Dosage: UNK
  9. NOVONORM [Concomitant]
     Dosage: UNK

REACTIONS (1)
  - DRUG ERUPTION [None]
